FAERS Safety Report 26089660 (Version 1)
Quarter: 2025Q4

REPORT INFORMATION
  Report Type: Report from Study
  Country: US (occurrence: US)
  Receive Date: 20251125
  Receipt Date: 20251125
  Transmission Date: 20260118
  Serious: Yes (Hospitalization)
  Sender: BEIGENE
  Company Number: US-BEIGENE-BGN-2025-018878

PATIENT
  Sex: Male
  Weight: 65.76 kg

DRUGS (6)
  1. BRUKINSA [Suspect]
     Active Substance: ZANUBRUTINIB
     Indication: Mantle cell lymphoma
     Dosage: 160 MILLIGRAM, BID
     Dates: start: 20241215
  2. BRUKINSA [Suspect]
     Active Substance: ZANUBRUTINIB
     Dosage: 160 MILLIGRAM, BID
     Route: 048
     Dates: start: 20241215
  3. BRUKINSA [Suspect]
     Active Substance: ZANUBRUTINIB
     Dosage: 160 MILLIGRAM, BID
     Route: 048
     Dates: start: 20241215
  4. BRUKINSA [Suspect]
     Active Substance: ZANUBRUTINIB
     Dosage: 160 MILLIGRAM, BID
     Dates: start: 20241215
  5. VENCLEXTA [Concomitant]
     Active Substance: VENETOCLAX
     Dosage: UNK
     Route: 065
  6. VENCLEXTA [Concomitant]
     Active Substance: VENETOCLAX
     Dosage: UNK
     Route: 065

REACTIONS (4)
  - Atrial fibrillation [Recovered/Resolved]
  - Labile blood pressure [Recovered/Resolved]
  - COVID-19 pneumonia [Unknown]
  - Anaemia [Unknown]
